FAERS Safety Report 4553726-3 (Version None)
Quarter: 2005Q1

REPORT INFORMATION
  Report Type: 
  Country: None (occurrence: None)
  Receive Date: 20050114
  Receipt Date: 20050114
  Transmission Date: 20050727
  Serious: No
  Sender: FDA-Public Use
  Company Number: None

PATIENT
  Age: 57 Year
  Sex: Male
  Weight: 90.2658 kg

DRUGS (1)
  1. TAXOL [Suspect]
     Dates: start: 20050113

REACTIONS (1)
  - DEVICE MALFUNCTION [None]
